FAERS Safety Report 9245150 (Version 1)
Quarter: 2013Q1

REPORT INFORMATION
  Report Type: Spontaneous
  Country: US (occurrence: None)
  Receive Date: 20121130
  Receipt Date: 20121130
  Transmission Date: 20140127
  Serious: Yes (Hospitalization)
  Sender: FDA-Public Use
  Company Number: US201208005906

PATIENT
  Age: 65 Year
  Sex: Male

DRUGS (3)
  1. BYDUREON [Suspect]
     Indication: TYPE 2 DIABETES MELLITUS
     Dosage: 2MG, WEEKLY (1/W), SUBCUTANEOUS
     Route: 058
     Dates: start: 20120511, end: 20120801
  2. BYETTA [Suspect]
     Indication: TYPE 2 DIABETES MELLITUS
     Dosage: UNK, UNKNOWN, SUBCUTANEOUS
     Route: 058
  3. DIURETICS [Concomitant]

REACTIONS (2)
  - Pancreatitis [None]
  - Nausea [None]
